FAERS Safety Report 25206073 (Version 3)
Quarter: 2025Q2

REPORT INFORMATION
  Report Type: Spontaneous
  Country: US (occurrence: US)
  Receive Date: 20250417
  Receipt Date: 20250505
  Transmission Date: 20250716
  Serious: No
  Sender: SYNDAX
  Company Number: US-SYNDAX PHARMACEUTICALS, INC.-2025US000344

PATIENT
  Sex: Female
  Weight: 118.88 kg

DRUGS (1)
  1. REVUFORJ [Suspect]
     Active Substance: REVUMENIB CITRATE
     Indication: Acute lymphocytic leukaemia
     Dosage: 160 MILLIGRAM, DAILY
     Route: 048
     Dates: start: 20250402

REACTIONS (1)
  - Diarrhoea [Unknown]
